FAERS Safety Report 13577140 (Version 1)
Quarter: 2017Q2

REPORT INFORMATION
  Report Type: Spontaneous
  Country: FR (occurrence: FR)
  Receive Date: 20170524
  Receipt Date: 20170524
  Transmission Date: 20170830
  Serious: Yes (Death)
  Sender: FDA-Public Use
  Company Number: FR-PFIZER INC-2017223533

PATIENT
  Age: 87 Year
  Sex: Female

DRUGS (4)
  1. PARACETAMOL [Concomitant]
     Active Substance: ACETAMINOPHEN
  2. KARDEGIC [Suspect]
     Active Substance: ASPIRIN LYSINE
     Indication: PROPHYLAXIS
     Dosage: 75 MG, 1X/DAY
     Route: 048
     Dates: start: 2015, end: 20170426
  3. TARDYFERON [Concomitant]
     Active Substance: FERROUS SULFATE
  4. FRAGMINE [Suspect]
     Active Substance: DALTEPARIN SODIUM
     Indication: THROMBOSIS PROPHYLAXIS
     Dosage: 5000 IU ANTI-XA / 0.2 ML
     Route: 058
     Dates: start: 20170424, end: 20170501

REACTIONS (2)
  - Haemorrhage [Fatal]
  - Extradural haematoma [Fatal]

NARRATIVE: CASE EVENT DATE: 20170427
